FAERS Safety Report 21560176 (Version 1)
Quarter: 2022Q4

REPORT INFORMATION
  Report Type: Spontaneous
  Country: US (occurrence: None)
  Receive Date: 20221104
  Receipt Date: 20221104
  Transmission Date: 20230113
  Serious: No
  Sender: FDA-Public Use
  Company Number: None

PATIENT

DRUGS (2)
  1. SUBOXONE [Suspect]
     Active Substance: BUPRENORPHINE HYDROCHLORIDE\NALOXONE HYDROCHLORIDE
  2. BUPRENORPHINE AND NALOXONE (BUPRENORPHINE\NALOXONE) [Suspect]
     Active Substance: BUPRENORPHINE\NALOXONE

REACTIONS (4)
  - Product dispensing error [None]
  - Wrong product administered [None]
  - Product substitution issue [None]
  - Drug monitoring procedure not performed [None]
